FAERS Safety Report 7323099-1 (Version None)
Quarter: 2011Q1

REPORT INFORMATION
  Report Type: 
  Country: None (occurrence: None)
  Receive Date: 20110301
  Receipt Date: 20110218
  Transmission Date: 20110831
  Serious: Yes (Hospitalization)
  Sender: FDA-Public Use
  Company Number: JP-NOVOPROD-322863

PATIENT
  Age: 51 Year
  Sex: Female
  Weight: 70 kg

DRUGS (5)
  1. KINEDAK [Concomitant]
     Dosage: 150 MG, QD
     Route: 048
  2. AMARYL [Concomitant]
     Dosage: 0.5-2 MG
     Route: 048
  3. VICTOZA [Suspect]
     Dosage: 0.9 MG, QD
     Route: 058
     Dates: start: 20100831
  4. VICTOZA [Suspect]
     Indication: TYPE 2 DIABETES MELLITUS
     Dosage: 0.3 MG, QD
     Route: 058
     Dates: start: 20100807
  5. VICTOZA [Suspect]
     Dosage: 0.6 MG, QD
     Route: 058
     Dates: start: 20100823

REACTIONS (4)
  - DECREASED APPETITE [None]
  - PANCREATITIS ACUTE [None]
  - ABDOMINAL PAIN UPPER [None]
  - NAUSEA [None]
